FAERS Safety Report 19256929 (Version 2)
Quarter: 2021Q2

REPORT INFORMATION
  Report Type: Report from Study
  Country: None (occurrence: AR)
  Receive Date: 20210513
  Receipt Date: 20210518
  Transmission Date: 20210717
  Serious: Yes (Hospitalization)
  Sender: FDA-Public Use
  Company Number: AR-ABBVIE-21P-007-3897908-00

PATIENT
  Age: 38 Year
  Sex: Male
  Weight: 75.7 kg

DRUGS (4)
  1. MEPREDNISONE [Concomitant]
     Active Substance: MEPREDNISONE
     Route: 048
     Dates: start: 20201009, end: 20201221
  2. MEPREDNISONE [Concomitant]
     Active Substance: MEPREDNISONE
     Indication: CROHN^S DISEASE
     Route: 048
     Dates: start: 20201222
  3. UPADACITINIB [Suspect]
     Active Substance: UPADACITINIB
     Indication: CROHN^S DISEASE
     Route: 048
     Dates: start: 20210201, end: 20210507
  4. UPADACITINIB [Suspect]
     Active Substance: UPADACITINIB
     Route: 048
     Dates: start: 20210513

REACTIONS (2)
  - Gastroenteritis [Recovered/Resolved]
  - Abdominal pain [Recovered/Resolved]

NARRATIVE: CASE EVENT DATE: 20210508
